FAERS Safety Report 5533200-8 (Version None)
Quarter: 2007Q4

REPORT INFORMATION
  Report Type: 
  Country: None (occurrence: None)
  Receive Date: 20071204
  Receipt Date: 20071128
  Transmission Date: 20080405
  Serious: Yes (Other)
  Sender: FDA-Public Use
  Company Number: US-ASTRAZENECA-2007UW27237

PATIENT
  Age: 61 Year
  Sex: Female
  Weight: 77.1 kg

DRUGS (8)
  1. ARIMIDEX [Suspect]
     Indication: BREAST CANCER
     Route: 048
     Dates: start: 20070901, end: 20071001
  2. COUMADIN [Suspect]
  3. LASIX [Concomitant]
  4. DIGOXIN [Concomitant]
  5. COREG [Concomitant]
  6. HYZAAR [Concomitant]
  7. ZANAFLEX [Concomitant]
  8. CATAFLAM [Concomitant]

REACTIONS (7)
  - DECREASED APPETITE [None]
  - GENERALISED OEDEMA [None]
  - HEADACHE [None]
  - MUSCLE SPASMS [None]
  - NAUSEA [None]
  - VAGINAL HAEMORRHAGE [None]
  - WEIGHT INCREASED [None]
